FAERS Safety Report 24277941 (Version 1)
Quarter: 2024Q3

REPORT INFORMATION
  Report Type: Spontaneous
  Country: RU (occurrence: RU)
  Receive Date: 20240903
  Receipt Date: 20240903
  Transmission Date: 20241017
  Serious: Yes (Other)
  Sender: ABBVIE
  Company Number: RU-ABBVIE-5899602

PATIENT
  Age: 70 Year
  Sex: Female

DRUGS (1)
  1. VIEKIRA PAK [Suspect]
     Active Substance: DASABUVIR\OMBITASVIR\PARITAPREVIR\RITONAVIR
     Indication: Chronic hepatitis B
     Route: 048
     Dates: start: 2017, end: 2017

REACTIONS (10)
  - Pancreatic failure [Unknown]
  - Gastrointestinal disorder [Unknown]
  - Cryoglobulinaemia [Unknown]
  - Central nervous system injury [Unknown]
  - Suspected COVID-19 [Unknown]
  - Nervous system disorder [Unknown]
  - Malaise [Unknown]
  - Nausea [Unknown]
  - Asthenia [Unknown]
  - Pyrexia [Unknown]

NARRATIVE: CASE EVENT DATE: 20201127
